FAERS Safety Report 4706531-9 (Version None)
Quarter: 2005Q2

REPORT INFORMATION
  Report Type: 
  Country: None (occurrence: None)
  Receive Date: 20050114
  Receipt Date: 20050114
  Transmission Date: 20051028
  Serious: Yes (Other)
  Sender: FDA-Public Use
  Company Number: None

PATIENT
  Sex: Female

DRUGS (2)
  1. BUSPIRONE SR [Suspect]
     Indication: DEPRESSION
     Dosage: 150MG DAILY
  2. BUSPIRONE SR [Suspect]
     Indication: DISEASE RECURRENCE
     Dosage: 150MG DAILY

REACTIONS (4)
  - ABDOMINAL PAIN UPPER [None]
  - CONDITION AGGRAVATED [None]
  - DEPRESSION [None]
  - THERAPEUTIC RESPONSE UNEXPECTED WITH DRUG SUBSTITUTION [None]
